FAERS Safety Report 7170292-7 (Version None)
Quarter: 2010Q4

REPORT INFORMATION
  Report Type: 
  Country: None (occurrence: None)
  Receive Date: 20101217
  Receipt Date: 20100902
  Transmission Date: 20110411
  Serious: No
  Sender: FDA-Public Use
  Company Number: A0879241A

PATIENT
  Age: 34 Year
  Sex: Male

DRUGS (3)
  1. LAMICTAL [Suspect]
     Indication: TRIGEMINAL NEURALGIA
     Dosage: 50MG PER DAY
     Route: 048
     Dates: start: 20100825, end: 20100826
  2. GABAPENTIN [Concomitant]
  3. NORCO [Concomitant]

REACTIONS (3)
  - ADVERSE EVENT [None]
  - PRURITUS [None]
  - RASH [None]
